FAERS Safety Report 19808864 (Version 6)
Quarter: 2022Q1

REPORT INFORMATION
  Report Type: Report from Study
  Country: AU (occurrence: None)
  Receive Date: 20210908
  Receipt Date: 20220211
  Transmission Date: 20220423
  Serious: Yes (Hospitalization, Other)
  Sender: FDA-Public Use
  Company Number: AU-EISAI MEDICAL RESEARCH-EC-2021-096455

PATIENT
  Age: 13 Year
  Sex: Male
  Weight: 53.2 kg

DRUGS (11)
  1. LENVATINIB [Suspect]
     Active Substance: LENVATINIB
     Indication: Osteosarcoma metastatic
     Route: 048
     Dates: start: 20210525, end: 20210728
  2. LENVATINIB [Suspect]
     Active Substance: LENVATINIB
     Route: 048
     Dates: start: 20210816, end: 20211017
  3. LENVATINIB [Suspect]
     Active Substance: LENVATINIB
     Route: 048
     Dates: start: 20211108, end: 20211221
  4. IFOSFAMIDE [Suspect]
     Active Substance: IFOSFAMIDE
     Indication: Osteosarcoma metastatic
     Route: 041
     Dates: start: 20210525, end: 20210728
  5. IFOSFAMIDE [Suspect]
     Active Substance: IFOSFAMIDE
     Route: 041
     Dates: start: 2021, end: 20210908
  6. ETOPOSIDE [Suspect]
     Active Substance: ETOPOSIDE
     Indication: Osteosarcoma metastatic
     Route: 041
     Dates: start: 20210525, end: 20210728
  7. ETOPOSIDE [Suspect]
     Active Substance: ETOPOSIDE
     Route: 041
     Dates: start: 2021, end: 20210908
  8. GABAPENTIN [Concomitant]
     Active Substance: GABAPENTIN
     Indication: Neuralgia
     Dosage: 400 MG MANE, 300 MG NIGHT
     Route: 048
     Dates: start: 20210505
  9. BACTRIM [Concomitant]
     Active Substance: SULFAMETHOXAZOLE\TRIMETHOPRIM
     Indication: Antifungal prophylaxis
     Dosage: 80 MG BD M,W,F
     Route: 048
     Dates: start: 20210505
  10. ASPIRIN [Concomitant]
     Active Substance: ASPIRIN
     Indication: Platelet dysfunction
     Route: 048
     Dates: start: 20210504
  11. MELATONIN [Concomitant]
     Active Substance: MELATONIN
     Indication: Insomnia
     Dosage: PER NOCTE
     Route: 048
     Dates: start: 20210501

REACTIONS (3)
  - Postoperative wound complication [Recovered/Resolved]
  - Wound dehiscence [Recovered/Resolved]
  - Febrile neutropenia [Recovered/Resolved]

NARRATIVE: CASE EVENT DATE: 20210715
